FAERS Safety Report 6790258-6 (Version None)
Quarter: 2010Q2

REPORT INFORMATION
  Report Type: 
  Country: None (occurrence: None)
  Receive Date: 20100624
  Receipt Date: 20100621
  Transmission Date: 20101027
  Serious: Yes (Other)
  Sender: FDA-Public Use
  Company Number: US-BAYER-201017065BCC

PATIENT
  Age: 82 Year
  Sex: Male

DRUGS (9)
  1. ASPIRIN [Suspect]
     Indication: CARDIAC DISORDER
     Dosage: TOTAL DAILY DOSE: 325 MG  UNIT DOSE: 325 MG
     Route: 065
  2. PLAVIX [Suspect]
     Indication: CARDIAC DISORDER
     Route: 065
  3. LOVENOX [Suspect]
     Indication: DRUG USE FOR UNKNOWN INDICATION
     Dosage: TOTAL DAILY DOSE: 30 MG  UNIT DOSE: 30 MG
     Route: 065
  4. AMIODARONE HCL [Concomitant]
     Route: 065
  5. ALTACE [Concomitant]
     Route: 065
  6. ARICEPT [Concomitant]
     Route: 065
  7. COREG [Concomitant]
     Route: 065
  8. FLOMAX [Concomitant]
     Route: 065
  9. ZANTAC [Concomitant]
     Route: 065

REACTIONS (2)
  - CEREBROVASCULAR ACCIDENT [None]
  - MUSCULAR WEAKNESS [None]
